FAERS Safety Report 16155597 (Version 3)
Quarter: 2019Q2

REPORT INFORMATION
  Report Type: Spontaneous
  Country: US (occurrence: US)
  Receive Date: 20190404
  Receipt Date: 20190502
  Transmission Date: 20190711
  Serious: Yes (Death)
  Sender: FDA-Public Use
  Company Number: US-ROCHE-2296755

PATIENT
  Sex: Female

DRUGS (8)
  1. POTASSIUM CITRATE. [Concomitant]
     Active Substance: POTASSIUM CITRATE
  2. PREDNISONE. [Concomitant]
     Active Substance: PREDNISONE
  3. SIMVASTATIN. [Concomitant]
     Active Substance: SIMVASTATIN
  4. NAPROXEN. [Concomitant]
     Active Substance: NAPROXEN
  5. SPIRIVA [Concomitant]
     Active Substance: TIOTROPIUM BROMIDE MONOHYDRATE
  6. TRAVATAN [Concomitant]
     Active Substance: TRAVOPROST
  7. ESBRIET [Suspect]
     Active Substance: PIRFENIDONE
     Indication: IDIOPATHIC PULMONARY FIBROSIS
     Route: 048
     Dates: start: 20160910
  8. ADVAIR HFA [Concomitant]
     Active Substance: FLUTICASONE PROPIONATE\SALMETEROL XINAFOATE

REACTIONS (1)
  - Respiratory failure [Fatal]
